FAERS Safety Report 13640811 (Version 7)
Quarter: 2019Q1

REPORT INFORMATION
  Report Type: Report from Study
  Country: None (occurrence: CA)
  Receive Date: 20170612
  Receipt Date: 20190109
  Transmission Date: 20190417
  Serious: Yes (Hospitalization, Other)
  Sender: FDA-Public Use
  Company Number: CA-ABBVIE-17K-028-2003541-00

PATIENT
  Sex: Female

DRUGS (3)
  1. HUMIRA [Suspect]
     Active Substance: ADALIMUMAB
     Indication: CROHN^S DISEASE
     Route: 058
     Dates: start: 20170327, end: 201705
  2. HUMIRA [Suspect]
     Active Substance: ADALIMUMAB
     Route: 058
     Dates: start: 2018
  3. HUMIRA [Suspect]
     Active Substance: ADALIMUMAB
     Route: 058
     Dates: start: 2018, end: 20180704

REACTIONS (10)
  - Renal failure [Unknown]
  - Gastrointestinal pain [Unknown]
  - Procedural complication [Unknown]
  - Inflammation [Unknown]
  - Depression postoperative [Not Recovered/Not Resolved]
  - Proctectomy [Recovered/Resolved]
  - Fistula [Unknown]
  - Procedural haemorrhage [Recovered/Resolved]
  - Intestinal cyst [Recovered/Resolved]
  - Dyspepsia [Unknown]

NARRATIVE: CASE EVENT DATE: 2017
